FAERS Safety Report 9943205 (Version 1)
Quarter: 2014Q1

REPORT INFORMATION
  Report Type: Spontaneous
  Country: US (occurrence: US)
  Receive Date: 20140303
  Receipt Date: 20140303
  Transmission Date: 20141002
  Serious: Yes (Death)
  Sender: FDA-Public Use
  Company Number: US-BANPHARM-20142257

PATIENT
  Age: 39 Year
  Sex: Female

DRUGS (6)
  1. DIPHENHYDRAMINE AND ACETAMINOPHEN UNKNOWN PRODUCT [Suspect]
     Route: 048
  2. ACETAMINOPHEN/BUTALBITAL/CAFFEINE [Suspect]
  3. BUPROPION [Suspect]
  4. PROMETHAZINE [Suspect]
  5. CARISOPRODOL [Suspect]
  6. ZOLPIDEM [Suspect]

REACTIONS (2)
  - Death [Fatal]
  - Completed suicide [Fatal]
